FAERS Safety Report 7877373-0 (Version None)
Quarter: 2011Q4

REPORT INFORMATION
  Report Type: 
  Country: None (occurrence: None)
  Receive Date: 20111031
  Receipt Date: 20111018
  Transmission Date: 20120403
  Serious: Yes (Hospitalization)
  Sender: FDA-Public Use
  Company Number: LT-ELI_LILLY_AND_COMPANY-LT201106004043

PATIENT
  Sex: Male

DRUGS (1)
  1. OLANZAPINE [Suspect]
     Indication: SCHIZOPHRENIA
     Dosage: 300 UNK, UNKNOWN
     Route: 030
     Dates: start: 20110324, end: 20110607

REACTIONS (5)
  - ATAXIA [None]
  - DISORIENTATION [None]
  - DELIRIUM [None]
  - DYSARTHRIA [None]
  - MALAISE [None]
